FAERS Safety Report 8997399 (Version 2)
Quarter: 2013Q1

REPORT INFORMATION
  Report Type: Report from Study
  Country: US (occurrence: US)
  Receive Date: 20130104
  Receipt Date: 20130222
  Transmission Date: 20140127
  Serious: Yes (Hospitalization, Other)
  Sender: FDA-Public Use
  Company Number: US-US-EMD SERONO, INC.-7184789

PATIENT
  Age: 8 None
  Sex: Male

DRUGS (16)
  1. SAIZEN [(SOMATROPIN (RDNA ORIGIN) FOR INJECTION)] [Suspect]
     Indication: GROWTH HORMONE DEFICIENCY
     Route: 058
     Dates: start: 20090317
  2. SAIZEN [(SOMATROPIN (RDNA ORIGIN) FOR INJECTION)] [Suspect]
     Route: 058
     Dates: end: 201206
  3. SAIZEN [(SOMATROPIN (RDNA ORIGIN) FOR INJECTION)] [Suspect]
     Route: 058
     Dates: start: 201206
  4. SYNTHROID [Concomitant]
     Indication: PRODUCT USED FOR UNKNOWN INDICATION
  5. SYNTHROID [Concomitant]
  6. SYNTHROID [Concomitant]
  7. CORTEF [Concomitant]
     Indication: PRODUCT USED FOR UNKNOWN INDICATION
     Route: 048
  8. ZYRTEC [Concomitant]
     Indication: HYPERSENSITIVITY
     Route: 048
  9. SINGULAIR [Concomitant]
     Indication: PRODUCT USED FOR UNKNOWN INDICATION
  10. SOLU-CORTEF [Concomitant]
     Indication: ADRENOCORTICAL INSUFFICIENCY ACUTE
     Route: 030
  11. SOLU-CORTEF [Concomitant]
     Indication: VOMITING
  12. SOLU-CORTEF [Concomitant]
     Indication: DIARRHOEA
  13. EMLA [Concomitant]
     Indication: PRODUCT USED FOR UNKNOWN INDICATION
     Route: 061
  14. GEBAUERS PAIN EASE [Concomitant]
     Indication: PREMEDICATION
  15. FLOVENT [Concomitant]
     Indication: PRODUCT USED FOR UNKNOWN INDICATION
  16. FLONASE [Concomitant]
     Indication: HYPERSENSITIVITY

REACTIONS (18)
  - Norovirus test positive [Unknown]
  - Insulin-like growth factor increased [Not Recovered/Not Resolved]
  - Pineal gland cyst [Unknown]
  - Arachnoid cyst [Unknown]
  - Pharyngitis streptococcal [Unknown]
  - Tonsillitis [Unknown]
  - Infectious mononucleosis [Unknown]
  - Fatigue [Recovered/Resolved]
  - Seasonal allergy [Not Recovered/Not Resolved]
  - Blood glucose increased [Unknown]
  - Skin odour abnormal [Unknown]
  - Polydipsia [Unknown]
  - Fall [Unknown]
  - Lip swelling [Unknown]
  - Thyroxine decreased [Unknown]
  - Lymph node palpable [Unknown]
  - Upper respiratory tract infection [Recovered/Resolved]
  - Drug ineffective [Unknown]
